FAERS Safety Report 24962011 (Version 1)
Quarter: 2025Q1

REPORT INFORMATION
  Report Type: Spontaneous
  Country: PT (occurrence: PT)
  Receive Date: 20250212
  Receipt Date: 20250212
  Transmission Date: 20250409
  Serious: Yes (Other)
  Sender: PFIZER
  Company Number: None

PATIENT
  Age: 69 Year
  Sex: Female
  Weight: 78 kg

DRUGS (3)
  1. IRINOTECAN HYDROCHLORIDE [Suspect]
     Active Substance: IRINOTECAN HYDROCHLORIDE
     Indication: Adenocarcinoma of colon
     Route: 042
     Dates: start: 20250122
  2. IRINOTECAN HYDROCHLORIDE [Suspect]
     Active Substance: IRINOTECAN HYDROCHLORIDE
     Indication: Adenocarcinoma of colon
     Dates: start: 20250103
  3. FLUOROURACIL [Concomitant]
     Active Substance: FLUOROURACIL
     Indication: Adenocarcinoma of colon
     Route: 042

REACTIONS (1)
  - Cough [Recovered/Resolved]

NARRATIVE: CASE EVENT DATE: 20250103
